FAERS Safety Report 19507142 (Version 4)
Quarter: 2023Q4

REPORT INFORMATION
  Report Type: Spontaneous
  Country: US (occurrence: US)
  Receive Date: 20210708
  Receipt Date: 20231114
  Transmission Date: 20240110
  Serious: No
  Sender: FDA-Public Use
  Company Number: US-PFIZER INC-2021512791

PATIENT
  Age: 54 Year
  Sex: Male

DRUGS (7)
  1. INLYTA [Suspect]
     Active Substance: AXITINIB
     Indication: Renal cancer
     Dosage: 5 MG, 2X/DAY (TAKE 5 MG BY MOUTH EVERY 12 HOURS. TAKE WHOLE WITH WATER, WITH OR WITHOUT FOOD)
     Route: 048
     Dates: start: 202111
  2. INLYTA [Suspect]
     Active Substance: AXITINIB
     Dosage: 5 MG,TAKE 1 TABLET BY MOUTH EVERY 12 HOURS AT THE SAME TIME
     Route: 048
  3. ADMELOG [Concomitant]
     Active Substance: INSULIN LISPRO
     Dosage: UNK
  4. AMLODIPINE BESYLATE [Concomitant]
     Active Substance: AMLODIPINE BESYLATE
     Dosage: UNK
  5. EGLUCENT KWIKPEN [Concomitant]
     Dosage: UNK
  6. LISINOPRIL [Concomitant]
     Active Substance: LISINOPRIL
     Dosage: UNK
  7. METFORMIN HYDROCHLORIDE [Concomitant]
     Active Substance: METFORMIN HYDROCHLORIDE
     Dosage: UNK

REACTIONS (2)
  - Blood pressure increased [Unknown]
  - Product dose omission issue [Unknown]
